APPROVED DRUG PRODUCT: DYNACIN
Active Ingredient: MINOCYCLINE HYDROCHLORIDE
Strength: EQ 75MG BASE
Dosage Form/Route: CAPSULE;ORAL
Application: A063067 | Product #002
Applicant: ALVOGEN INC
Approved: Sep 15, 1999 | RLD: No | RS: No | Type: DISCN